FAERS Safety Report 20453371 (Version 5)
Quarter: 2022Q2

REPORT INFORMATION
  Report Type: Report from Study
  Country: NO (occurrence: NO)
  Receive Date: 20220210
  Receipt Date: 20220616
  Transmission Date: 20220721
  Serious: Yes (Hospitalization, Other)
  Sender: FDA-Public Use
  Company Number: NO-BAYER-2021A239749

PATIENT
  Age: 85 Year
  Sex: Male

DRUGS (13)
  1. EYLEA [Suspect]
     Active Substance: AFLIBERCEPT
     Indication: Neovascular age-related macular degeneration
     Dosage: 50 ?L, Q4WK OD EYE, SOLUTION FOR INJECTION IN PRE-FILLED SYRINGE, 40MG/ML
     Dates: start: 20191206, end: 20191206
  2. EYLEA [Suspect]
     Active Substance: AFLIBERCEPT
     Dosage: 50 ?L, Q8WK OD EYE, SOLUTION FOR INJECTION IN PRE-FILLED SYRINGE, 40MG/ML
     Dates: start: 20200129, end: 20200129
  3. EYLEA [Suspect]
     Active Substance: AFLIBERCEPT
     Dosage: 50 ?L, Q8WK OD EYE, SOLUTION FOR INJECTION IN PRE-FILLED SYRINGE, 40MG/ML
     Dates: start: 20200417, end: 20200417
  4. EYLEA [Suspect]
     Active Substance: AFLIBERCEPT
     Dosage: 50 ?L, INTERVAL OF NEXT INJECTION VISIT: 10, SOLUTION FOR INJECTION IN PFS, 40MG/ML
     Dates: start: 20200615, end: 20200615
  5. EYLEA [Suspect]
     Active Substance: AFLIBERCEPT
     Dosage: 50 ?L, Q4WK OD EYE. INTERVAL REDUCED DUE TO NEW FLUID, SOLUTION FOR INJECTION IN PFS, 40MG/ML
     Dates: start: 20200827, end: 20200827
  6. EYLEA [Suspect]
     Active Substance: AFLIBERCEPT
     Dosage: 50 ?L, Q4WK OD EYE,  SOLUTION FOR INJECTION IN PRE-FILLED SYRINGE, 40MG/ML
     Dates: start: 20200924, end: 20200924
  7. EYLEA [Suspect]
     Active Substance: AFLIBERCEPT
     Dosage: 50 ?L, Q8WK OD EYE, SOLUTION FOR INJECTION IN PFS, 40MG/ML
     Dates: start: 20210118, end: 20210118
  8. EYLEA [Suspect]
     Active Substance: AFLIBERCEPT
     Dosage: 50 ?L, Q8WK OD EYE, SOLUTION FOR INJECTION IN PRE-FILLED SYRINGE, 40MG/ML
     Dates: start: 20210511, end: 20210511
  9. EYLEA [Suspect]
     Active Substance: AFLIBERCEPT
     Dosage: 50 ?L, INTERVAL OF NEXT INJECTION VISIT: 10 , SOL. FOR INJ. IN PRE-FILLED SYRINGE, 40MG/ML
     Dates: start: 20210730, end: 20210730
  10. EYLEA [Suspect]
     Active Substance: AFLIBERCEPT
     Dosage: 50 ?L, Q8WK OD EYE, SOLUTION FOR INJECTION IN PFS, 40MG/ML
     Dates: start: 20211008, end: 20211008
  11. EYLEA [Suspect]
     Active Substance: AFLIBERCEPT
     Dosage: 50 ?L, Q8WK OD EYE, SOLUTION FOR INJECTION IN PRE-FILLED SYRINGE, 40MG/ML
     Dates: start: 20210316, end: 20210316
  12. EYLEA [Suspect]
     Active Substance: AFLIBERCEPT
     Dosage: 50 ?L, INTERVAL OF NEXT INJECTION VISIT: 10, SOLUTION FOR INJECTION IN PRE-FILLED SYRINGE, 40MG/ML
     Dates: start: 20211201, end: 20211201
  13. ARTIFICIAL TEARS [PROPYLENE GLYCOL] [Concomitant]
     Indication: Dry eye
     Dosage: 4 GTT, QD
     Route: 031
     Dates: start: 20220330

REACTIONS (9)
  - Iridocele [Recovered/Resolved]
  - Vitrectomy [Recovered/Resolved]
  - Iris injury [Recovered/Resolved]
  - Anterior capsular rupture [Recovered/Resolved]
  - Eye injury [Recovering/Resolving]
  - Choroidal haemorrhage [Recovering/Resolving]
  - Posterior capsule rupture [Recovered/Resolved]
  - Vitreous detachment [Recovering/Resolving]
  - Cataract operation [Recovered/Resolved]

NARRATIVE: CASE EVENT DATE: 20210827
